FAERS Safety Report 7878709-7 (Version None)
Quarter: 2011Q4

REPORT INFORMATION
  Report Type: 
  Country: None (occurrence: None)
  Receive Date: 20111028
  Receipt Date: 20111018
  Transmission Date: 20120403
  Serious: Yes (Life-Threatening, Hospitalization)
  Sender: FDA-Public Use
  Company Number: 2011MA015380

PATIENT
  Age: 90 Year
  Sex: Male

DRUGS (16)
  1. VENTOLIN [Concomitant]
  2. DOCUSATE SODIUM [Concomitant]
  3. MUPIROCIN [Concomitant]
  4. CLOBETASONE [Concomitant]
  5. ALBUTEROL SULFATE AUTOHALER [Concomitant]
  6. MOVIPREP [Concomitant]
  7. ACETAMINOPHEN [Concomitant]
  8. DOXYCYCLINE [Concomitant]
  9. VISCOTEARS [Concomitant]
  10. FLUTICASONE PROPIONATE/SALMETEROL [Concomitant]
  11. CO-AMOXICLAV (CLAVULIN) [Suspect]
     Dosage: 1 DF; BID; PO
     Route: 048
     Dates: start: 20110729, end: 20110805
  12. GABAPENTIN [Suspect]
     Indication: CERVICAL MYELOPATHY
     Dosage: 300 MG; QID; PO
     Route: 048
     Dates: start: 20020101, end: 20110815
  13. INFLUENZA VIRUS [Concomitant]
  14. BETAMETHASONE [Concomitant]
  15. PNEUMOCOCCAL POLYSACCHARIDE VACCINE [Concomitant]
  16. CONOTRANE [Concomitant]

REACTIONS (2)
  - WHITE BLOOD CELL COUNT DECREASED [None]
  - NEUTROPENIA [None]
